FAERS Safety Report 10880874 (Version 1)
Quarter: 2015Q1

REPORT INFORMATION
  Report Type: Spontaneous
  Country: US (occurrence: None)
  Receive Date: 20150225
  Receipt Date: 20150225
  Transmission Date: 20150721
  Serious: Yes (Hospitalization)
  Sender: FDA-Public Use
  Company Number: None

PATIENT
  Age: 60 Year
  Sex: Female
  Weight: 141.7 kg

DRUGS (1)
  1. CARBOPLATIN. [Suspect]
     Active Substance: CARBOPLATIN
     Dates: end: 20141208

REACTIONS (9)
  - Infusion site swelling [None]
  - Infusion site discomfort [None]
  - Infusion site pain [None]
  - Chemical injury [None]
  - Blister [None]
  - Soft tissue necrosis [None]
  - Infusion site erythema [None]
  - Infusion site extravasation [None]
  - Pyrexia [None]

NARRATIVE: CASE EVENT DATE: 20141215
